FAERS Safety Report 19821336 (Version 1)
Quarter: 2021Q3

REPORT INFORMATION
  Report Type: Spontaneous
  Country: MX (occurrence: MX)
  Receive Date: 20210913
  Receipt Date: 20210913
  Transmission Date: 20211014
  Serious: Yes (Hospitalization, Other)
  Sender: FDA-Public Use
  Company Number: MX-BAYER-2021-207295

PATIENT
  Age: 58 Year
  Sex: Male
  Weight: 80 kg

DRUGS (1)
  1. ULTRAVIST [Suspect]
     Active Substance: IOPROMIDE
     Indication: COMPUTERISED TOMOGRAM
     Dosage: 300 ML, ONCE

REACTIONS (6)
  - Respiratory distress [None]
  - Laryngeal oedema [None]
  - Odynophagia [None]
  - Erythema [None]
  - Oedema peripheral [None]
  - Pruritus [None]

NARRATIVE: CASE EVENT DATE: 20200925
